FAERS Safety Report 9892147 (Version 1)
Quarter: 2014Q1

REPORT INFORMATION
  Report Type: Report from Study
  Country: BR (occurrence: BR)
  Receive Date: 20140212
  Receipt Date: 20140212
  Transmission Date: 20141002
  Serious: Yes (Other)
  Sender: FDA-Public Use
  Company Number: PHHY2014BR016594

PATIENT
  Age: 36 Year
  Sex: Male

DRUGS (6)
  1. GILENYA [Suspect]
     Indication: MULTIPLE SCLEROSIS
     Dosage: 0.5 MG, QD
     Route: 048
     Dates: start: 201202
  2. GILENYA [Suspect]
     Dosage: 0.5 MG, THREE DAYS PER WEEK
     Route: 048
     Dates: start: 20131202, end: 20140206
  3. SERTRALINE [Concomitant]
     Indication: DEPRESSION
     Dosage: 1 DF, QD
     Route: 048
     Dates: start: 201111
  4. MANTIDAN [Concomitant]
  5. FRONTAL [Concomitant]
  6. OMEGA 3 [Concomitant]

REACTIONS (2)
  - Osteoporosis [Not Recovered/Not Resolved]
  - Spinal pain [Not Recovered/Not Resolved]
